FAERS Safety Report 5166953-1 (Version None)
Quarter: 2006Q4

REPORT INFORMATION
  Report Type: 
  Country: None (occurrence: None)
  Receive Date: 20061207
  Receipt Date: 20060524
  Transmission Date: 20070319
  Serious: Yes (Other)
  Sender: FDA-Public Use
  Company Number: FR-ELI_LILLY_AND_COMPANY-FR200605006046

PATIENT
  Age: 72 Year
  Sex: Female

DRUGS (9)
  1. FORTEO [Suspect]
     Indication: OSTEOPOROSIS
     Dosage: 20 UG, DAILY (1/D)
     Route: 058
     Dates: start: 20051126
  2. PROPOFOL [Concomitant]
     Indication: PAIN
  3. FENOFIBRATE [Concomitant]
     Indication: HYPERCHOLESTEROLAEMIA
     Dosage: 1 D/F, DAILY (1/D)
     Dates: start: 19960101
  4. MUCOMYST [Concomitant]
     Indication: BRONCHITIS CHRONIC
     Dosage: 2 D/F, DAILY (1/D)
     Dates: start: 19890101
  5. SERETIDE [Concomitant]
  6. LEXOMIL [Concomitant]
  7. ISKEDYL [Concomitant]
     Indication: CEREBROVASCULAR ACCIDENT
     Dosage: 2 D/F, DAILY (1/D)
     Dates: start: 19910101
  8. DAFLON [Concomitant]
     Indication: HAEMORRHOIDS
     Dosage: 2 D/F, DAILY (1/D)
     Dates: start: 20040101
  9. ASPEGIC 1000 [Concomitant]
     Indication: PAIN

REACTIONS (11)
  - ALOPECIA [None]
  - FACIAL PALSY [None]
  - FLATULENCE [None]
  - HEADACHE [None]
  - HOT FLUSH [None]
  - MUSCULOSKELETAL PAIN [None]
  - MYOCLONUS [None]
  - NECK PAIN [None]
  - PAIN [None]
  - PAIN IN EXTREMITY [None]
  - PRURITUS [None]
